FAERS Safety Report 15665130 (Version 1)
Quarter: 2018Q4

REPORT INFORMATION
  Report Type: Spontaneous
  Country: AU (occurrence: AU)
  Receive Date: 20181128
  Receipt Date: 20181128
  Transmission Date: 20190205
  Serious: Yes (Other)
  Sender: FDA-Public Use
  Company Number: AU-SA-2018SA146321

PATIENT

DRUGS (1)
  1. LEMTRADA [Suspect]
     Active Substance: ALEMTUZUMAB

REACTIONS (3)
  - Red blood cell count increased [Unknown]
  - Goodpasture^s syndrome [Unknown]
  - Protein urine present [Unknown]
